FAERS Safety Report 11720085 (Version 2)
Quarter: 2016Q1

REPORT INFORMATION
  Report Type: Report from Study
  Country: BR (occurrence: BR)
  Receive Date: 20151110
  Receipt Date: 20160221
  Transmission Date: 20160525
  Serious: Yes (Death, Hospitalization, Other)
  Sender: FDA-Public Use
  Company Number: BR-ROCHE-1655990

PATIENT
  Sex: Male
  Weight: 40 kg

DRUGS (1)
  1. AVASTIN [Suspect]
     Active Substance: BEVACIZUMAB
     Indication: COLORECTAL CANCER
     Route: 065
     Dates: start: 20151118

REACTIONS (4)
  - Metastases to gastrointestinal tract [Not Recovered/Not Resolved]
  - Metastases to prostate [Not Recovered/Not Resolved]
  - Metastatic neoplasm [Unknown]
  - Metastases to lung [Fatal]
